FAERS Safety Report 9013756 (Version 1)
Quarter: 2012Q4

REPORT INFORMATION
  Report Type: Spontaneous
  Country: BR (occurrence: None)
  Receive Date: 20121231
  Receipt Date: 20121231
  Transmission Date: 20130627
  Serious: Yes (Other)
  Sender: FDA-Public Use
  Company Number: VAL_01219_2012

PATIENT
  Sex: Female

DRUGS (2)
  1. PARLODEL [Suspect]
     Indication: BONE DISORDER
     Route: 048
  2. PARACETAMOL [Suspect]
     Indication: ABDOMINAL PAIN
     Route: 048
     Dates: start: 20121218

REACTIONS (5)
  - Off label use [None]
  - Expired drug administered [None]
  - Abdominal pain [None]
  - Dyspnoea [None]
  - Throat tightness [None]
